FAERS Safety Report 11658843 (Version 2)
Quarter: 2015Q4

REPORT INFORMATION
  Report Type: Spontaneous
  Country: TR (occurrence: TR)
  Receive Date: 20151026
  Receipt Date: 20151029
  Transmission Date: 20160304
  Serious: Yes (Other)
  Sender: FDA-Public Use
  Company Number: ALCN2015TR006544

PATIENT
  Age: 26 Year
  Sex: Male

DRUGS (4)
  1. VIGAMOX [Suspect]
     Active Substance: MOXIFLOXACIN HYDROCHLORIDE
     Indication: POSTOPERATIVE CARE
     Dosage: 1 DF, QID
     Route: 047
  2. MAXIDEX [Suspect]
     Active Substance: DEXAMETHASONE
     Indication: POSTOPERATIVE CARE
     Dosage: 1 DF, QID
     Route: 047
  3. MAXIDEX [Suspect]
     Active Substance: DEXAMETHASONE
     Dosage: 2 DF, QH
     Route: 047
  4. VOLTAREN [Suspect]
     Active Substance: DICLOFENAC SODIUM
     Indication: POSTOPERATIVE CARE
     Dosage: 1 DF, QID
     Route: 047

REACTIONS (10)
  - Corneal epithelium defect [Recovering/Resolving]
  - Corneal oedema [Unknown]
  - Visual acuity reduced [Unknown]
  - Conjunctival hyperaemia [Unknown]
  - Ocular hyperaemia [Unknown]
  - Eye pain [Unknown]
  - Corneal disorder [Not Recovered/Not Resolved]
  - Corneal infiltrates [Recovering/Resolving]
  - Off label use [Unknown]
  - Ulcerative keratitis [Recovering/Resolving]
